FAERS Safety Report 24431532 (Version 1)
Quarter: 2024Q4

REPORT INFORMATION
  Report Type: Other
  Country: FR (occurrence: FR)
  Receive Date: 20241014
  Receipt Date: 20241014
  Transmission Date: 20250115
  Serious: Yes (Hospitalization)
  Sender: ZYDUS PHARM
  Company Number: None

PATIENT

DRUGS (4)
  1. ACETAMINOPHEN [Suspect]
     Active Substance: ACETAMINOPHEN
     Indication: Influenza like illness
     Dosage: UNK
     Route: 048
     Dates: start: 20231229, end: 20240102
  2. MAXILASE [Suspect]
     Active Substance: PANCRELIPASE
     Indication: Influenza like illness
     Dosage: UNK
     Route: 048
     Dates: start: 20231229, end: 20240102
  3. ACETYLCYSTEINE [Suspect]
     Active Substance: ACETYLCYSTEINE
     Indication: Influenza like illness
     Dosage: UNK
     Route: 048
     Dates: start: 20231229, end: 20240102
  4. TIXOCORTOL PIVALATE [Suspect]
     Active Substance: TIXOCORTOL PIVALATE
     Indication: Influenza like illness
     Dosage: UNK
     Route: 045
     Dates: start: 20231229, end: 20240102

REACTIONS (1)
  - Cutaneous vasculitis [Recovered/Resolved]

NARRATIVE: CASE EVENT DATE: 20240102
